FAERS Safety Report 22329499 (Version 1)
Quarter: 2023Q2

REPORT INFORMATION
  Report Type: Spontaneous
  Country: AR (occurrence: None)
  Receive Date: 20230517
  Receipt Date: 20230517
  Transmission Date: 20230721
  Serious: Yes (Other)
  Sender: FDA-Public Use
  Company Number: AR-ROCHE-3349297

PATIENT
  Age: 61 Year
  Sex: Male

DRUGS (7)
  1. RITUXIMAB [Suspect]
     Active Substance: RITUXIMAB
     Indication: B-cell lymphoma
     Dosage: MAINTENANCE, 12 DOSES
     Route: 065
     Dates: start: 201804, end: 201804
  2. OBINUTUZUMAB [Suspect]
     Active Substance: OBINUTUZUMAB
     Indication: B-cell lymphoma
     Route: 042
     Dates: start: 202302
  3. CYCLOPHOSPHAMIDE [Concomitant]
     Active Substance: CYCLOPHOSPHAMIDE
     Indication: B-cell lymphoma
     Dates: start: 201804, end: 201804
  4. DOXORUBICIN [Concomitant]
     Active Substance: DOXORUBICIN
     Indication: B-cell lymphoma
     Dates: start: 201804, end: 201804
  5. VINCRISTINE [Concomitant]
     Active Substance: VINCRISTINE
     Indication: B-cell lymphoma
     Dates: start: 201804, end: 201804
  6. PREDNISONE [Concomitant]
     Active Substance: PREDNISONE
     Indication: B-cell lymphoma
     Dates: start: 201804, end: 201804
  7. BENDAMUSTINE [Concomitant]
     Active Substance: BENDAMUSTINE
     Indication: B-cell lymphoma
     Dates: start: 202302

REACTIONS (1)
  - B-cell lymphoma recurrent [Unknown]
